FAERS Safety Report 17287510 (Version 1)
Quarter: 2020Q1

REPORT INFORMATION
  Report Type: Spontaneous
  Country: NL (occurrence: NL)
  Receive Date: 20200120
  Receipt Date: 20200120
  Transmission Date: 20200409
  Serious: Yes (Disabling)
  Sender: FDA-Public Use
  Company Number: NL-TEVA-2020-NL-1169547

PATIENT
  Age: 43 Year
  Sex: Male
  Weight: 68 kg

DRUGS (2)
  1. QUETIAPINE. [Suspect]
     Active Substance: QUETIAPINE
     Dosage: 300 MILLIGRAM DAILY; ??CONTROLLED-RELEASE TABLET, 300 MG (MILLIGRAM), ONCE A DAY, 300 MG
     Dates: end: 20191216
  2. QUETIAPINE. [Suspect]
     Active Substance: QUETIAPINE
     Indication: SCHIZOPHRENIA
     Dosage: 250 MILLIGRAM DAILY; ?CONTROLLED-RELEASE TABLET, ONCE A DAY, 250 MG
     Dates: start: 2019

REACTIONS (8)
  - Panic attack [Recovering/Resolving]
  - Musculoskeletal stiffness [Recovering/Resolving]
  - Therapeutic response unexpected [Unknown]
  - Malaise [Recovering/Resolving]
  - Physical disability [Recovering/Resolving]
  - Dyspnoea [Recovering/Resolving]
  - Movement disorder [Recovering/Resolving]
  - Drug ineffective [Recovering/Resolving]

NARRATIVE: CASE EVENT DATE: 20190719
